FAERS Safety Report 16357577 (Version 1)
Quarter: 2019Q2

REPORT INFORMATION
  Report Type: Report from Study
  Country: ES (occurrence: ES)
  Receive Date: 20190527
  Receipt Date: 20190527
  Transmission Date: 20190711
  Serious: Yes (Other)
  Sender: FDA-Public Use
  Company Number: ES-ACCORD-129326

PATIENT
  Age: 54 Year
  Sex: Female

DRUGS (5)
  1. FUROSEMIDE. [Suspect]
     Active Substance: FUROSEMIDE
     Indication: POLYURIA
     Dosage: 20 MG EVERY 12 HOURS
     Route: 042
     Dates: start: 20180918, end: 20180923
  2. VALGANCICLOVIR ACCORD [Suspect]
     Active Substance: VALGANCICLOVIR
     Indication: PROPHYLAXIS
     Dosage: 450 MG EVERY 48 HOURS
     Route: 048
     Dates: start: 20180918
  3. ADVAGRAF [Suspect]
     Active Substance: TACROLIMUS
     Indication: RENAL TRANSPLANT
     Dosage: 5 MG EVERY 24 HOURS
     Route: 048
     Dates: start: 20180918
  4. SEPTRIN [Suspect]
     Active Substance: SULFAMETHOXAZOLE\TRIMETHOPRIM
     Indication: PROPHYLAXIS
     Dosage: 1CP EVERY 48 HOURS
     Dates: start: 20180918, end: 20180924
  5. MYFORTIC [Suspect]
     Active Substance: MYCOPHENOLATE SODIUM
     Indication: RENAL TRANSPLANT
     Dosage: 720 MG EVERY 12 HOURS
     Route: 048
     Dates: start: 20180918

REACTIONS (1)
  - Hyperamylasaemia [Unknown]

NARRATIVE: CASE EVENT DATE: 20180922
